FAERS Safety Report 12824153 (Version 1)
Quarter: 2016Q4

REPORT INFORMATION
  Report Type: Spontaneous
  Country: FR (occurrence: FR)
  Receive Date: 20161007
  Receipt Date: 20161007
  Transmission Date: 20170207
  Serious: Yes (Hospitalization)
  Sender: FDA-Public Use
  Company Number: FR-AUROBINDO-AUR-APL-2016-12220

PATIENT
  Age: 53 Year
  Sex: Female

DRUGS (17)
  1. DOXORUBICINE TEVA [Suspect]
     Active Substance: DOXORUBICIN
     Indication: HODGKIN^S DISEASE STAGE IV
     Dosage: ON DAY 1, DAY 2 AND DAY 3, EVERY 28 DAYS (52 MG)
     Route: 042
     Dates: start: 20160816, end: 20160816
  2. ETOPOSIDE MYLAN [Suspect]
     Active Substance: ETOPOSIDE
     Indication: HODGKIN^S DISEASE STAGE IV
     Dosage: ON DAY 1, DAY 2 AND DAY 3, EVERY 28 DAYS (310 MG)
     Route: 042
     Dates: start: 20160816, end: 20160817
  3. ENDOXAN                            /00021101/ [Suspect]
     Active Substance: CYCLOPHOSPHAMIDE
     Indication: HODGKIN^S DISEASE STAGE IV
     Dosage: 67.142 MG, (1880 MG EVERY 28 DAYS)
     Route: 042
     Dates: start: 20160816, end: 20160816
  4. METHYLPREDNISOLONE MYLAN           /00049602/ [Suspect]
     Active Substance: METHYLPREDNISOLONE SODIUM SUCCINATE
     Indication: HODGKIN^S DISEASE STAGE IV
     Dosage: ON DAY 1 OF CYCLE (40 MG EVERY 28 DAYS)
     Route: 042
     Dates: start: 20160816, end: 20160816
  5. ZELITREX [Concomitant]
     Active Substance: VALACYCLOVIR HYDROCHLORIDE
     Indication: ANTIVIRAL PROPHYLAXIS
     Dosage: 500 MG, TWO TIMES A DAY
     Route: 048
     Dates: start: 20160816
  6. OFLOXACINE [Concomitant]
     Active Substance: OFLOXACIN
     Indication: ANTIBIOTIC PROPHYLAXIS
     Dosage: 200 MG, TWO TIMES A DAY
     Route: 048
     Dates: start: 20160810
  7. CORTANCYL [Suspect]
     Active Substance: PREDNISONE
     Indication: HODGKIN^S DISEASE STAGE IV
     Dosage: 60 MG, DAILY
     Route: 048
     Dates: start: 20160817, end: 20160817
  8. ONDANSETRON ORODISPERSIBLE TABLET 8MG [Suspect]
     Active Substance: ONDANSETRON
     Indication: PROPHYLAXIS OF NAUSEA AND VOMITING
     Dosage: 8 MG, UNK
     Route: 048
     Dates: start: 20160816, end: 20160817
  9. UROMITEXAN [Suspect]
     Active Substance: MESNA
     Dosage: 3000 MG, UNK
     Route: 048
     Dates: start: 20160816, end: 20160816
  10. EFFEXOR [Concomitant]
     Active Substance: VENLAFAXINE HYDROCHLORIDE
     Indication: PRODUCT USED FOR UNKNOWN INDICATION
     Dosage: 1 TABLET IN THE MORNING, HALF A TABLET AT MIDDAY
     Route: 065
  11. DIFFU K [Concomitant]
     Active Substance: POTASSIUM CHLORIDE
     Indication: PRODUCT USED FOR UNKNOWN INDICATION
     Dosage: 2 TABLETS IN THE EVENING)
     Route: 065
  12. XANAX [Concomitant]
     Active Substance: ALPRAZOLAM
     Indication: PRODUCT USED FOR UNKNOWN INDICATION
     Dosage: (1 TABLET IN THE MORNING AND IN THE EVENING),
     Route: 065
  13. NATULAN [Suspect]
     Active Substance: PROCARBAZINE HYDROCHLORIDE
     Indication: HODGKIN^S DISEASE STAGE IV
     Dosage: 150 MG, DAILY
     Route: 048
     Dates: start: 20160816, end: 20160822
  14. UROMITEXAN [Suspect]
     Active Substance: MESNA
     Indication: PROPHYLAXIS URINARY TRACT INFECTION
     Dosage: 688.5 MG, UNK
     Route: 042
     Dates: start: 20160816, end: 20160816
  15. EMEND [Suspect]
     Active Substance: APREPITANT
     Indication: PROPHYLAXIS OF NAUSEA AND VOMITING
     Dosage: ON DAY 1, DAY 2 AND DAY 3 OF CYCLE, EVERY 28 DAYS
     Route: 048
     Dates: start: 20160816, end: 20160817
  16. BACTRIM [Concomitant]
     Active Substance: SULFAMETHOXAZOLE\TRIMETHOPRIM
     Indication: ANTIBIOTIC PROPHYLAXIS
     Dosage: UNK
     Route: 048
     Dates: start: 20160817
  17. INEXIUM                            /01479302/ [Concomitant]
     Active Substance: ESOMEPRAZOLE MAGNESIUM
     Indication: PRODUCT USED FOR UNKNOWN INDICATION
     Dosage: 20 MG, EVERY MORNING
     Route: 065

REACTIONS (9)
  - Rash [None]
  - Hypotension [None]
  - Pruritus generalised [None]
  - Hepatic enzyme abnormal [None]
  - Rash maculo-papular [Recovered/Resolved]
  - Febrile bone marrow aplasia [None]
  - Tachycardia [None]
  - Implant site thrombosis [None]
  - Escherichia test positive [None]

NARRATIVE: CASE EVENT DATE: 20160818
